FAERS Safety Report 6546569-2 (Version None)
Quarter: 2010Q1

REPORT INFORMATION
  Report Type: 
  Country: None (occurrence: None)
  Receive Date: 20100122
  Receipt Date: 20100118
  Transmission Date: 20100710
  Serious: Yes (Life-Threatening)
  Sender: FDA-Public Use
  Company Number: KR-ROCHE-506032

PATIENT
  Sex: Female

DRUGS (4)
  1. BONIVA [Suspect]
     Indication: OSTEOPOROSIS
     Route: 048
     Dates: start: 20070608, end: 20070701
  2. VITAMIN C [Concomitant]
  3. ANTIHYPERTENSIVE NOS [Concomitant]
  4. GINSENG [Concomitant]

REACTIONS (4)
  - ANGIOEDEMA [None]
  - INFLUENZA LIKE ILLNESS [None]
  - SKIN DISCOLOURATION [None]
  - URTICARIA [None]
